FAERS Safety Report 8306968-5 (Version None)
Quarter: 2012Q2

REPORT INFORMATION
  Report Type: 
  Country: None (occurrence: None)
  Receive Date: 20120419
  Receipt Date: 20120412
  Transmission Date: 20120825
  Serious: Yes (Death)
  Sender: FDA-Public Use
  Company Number: SP05682

PATIENT
  Age: 70 Year
  Sex: Male

DRUGS (1)
  1. APRISO [Suspect]
     Indication: COLITIS ULCERATIVE
     Dosage: ORAL
     Route: 048
     Dates: start: 20120301, end: 20120401

REACTIONS (1)
  - MYOCARDIAL INFARCTION [None]
